FAERS Safety Report 6289356-5 (Version None)
Quarter: 2009Q3

REPORT INFORMATION
  Report Type: 
  Country: None (occurrence: None)
  Receive Date: 20090728
  Receipt Date: 20090728
  Transmission Date: 20100115
  Serious: Yes (Hospitalization)
  Sender: FDA-Public Use
  Company Number: None

PATIENT
  Age: 74 Year
  Sex: Female

DRUGS (2)
  1. METFORMIN HCL [Suspect]
     Indication: HYPERTENSION
     Dates: end: 20081104
  2. LISINOPRIL [Suspect]
     Indication: DIABETES MELLITUS
     Dates: end: 20081104

REACTIONS (5)
  - FALL [None]
  - LACTIC ACIDOSIS [None]
  - RENAL FAILURE ACUTE [None]
  - URINARY TRACT INFECTION [None]
  - UROSEPSIS [None]
